FAERS Safety Report 6819300-0 (Version None)
Quarter: 2010Q3

REPORT INFORMATION
  Report Type: 
  Country: None (occurrence: None)
  Receive Date: 20100707
  Receipt Date: 20100628
  Transmission Date: 20110219
  Serious: Yes (Hospitalization, Disabling, Other)
  Sender: FDA-Public Use
  Company Number: GB-WYE-G06331210

PATIENT
  Age: 55 Year
  Sex: Female
  Weight: 66.4 kg

DRUGS (4)
  1. VENLAFAXINE HYDROCHLORIDE [Suspect]
     Indication: DEPRESSION
     Dosage: 150MG, FREQUENCY UNKNOWN
     Route: 048
     Dates: start: 20100421
  2. RISPERIDONE [Concomitant]
     Indication: PARANOIA
     Dosage: 2MG, FREQUENCY UNKNOWN
     Route: 048
     Dates: start: 20090101
  3. STELAZINE [Concomitant]
     Indication: PARANOIA
     Dosage: 2MG, FREQUENCY UNKNOWN
     Route: 048
     Dates: start: 20090101
  4. FLUOXETINE [Concomitant]
     Indication: DEPRESSION
     Dosage: 80MG, FREQUENCY UNKNOWN
     Route: 048
     Dates: end: 20100428

REACTIONS (3)
  - ABDOMINAL PAIN UPPER [None]
  - ACTIVITIES OF DAILY LIVING IMPAIRED [None]
  - PAIN IN EXTREMITY [None]
